FAERS Safety Report 4562378-8 (Version None)
Quarter: 2005Q1

REPORT INFORMATION
  Report Type: 
  Country: None (occurrence: None)
  Receive Date: 20050127
  Receipt Date: 20041206
  Transmission Date: 20050727
  Serious: Yes (Hospitalization)
  Sender: FDA-Public Use
  Company Number: 200414568FR

PATIENT
  Age: 61 Year
  Sex: Male

DRUGS (10)
  1. KETEK [Suspect]
     Route: 048
     Dates: end: 20041030
  2. DERINOX [Suspect]
     Dates: end: 20041030
  3. SILOMAT [Suspect]
     Route: 048
     Dates: end: 20041030
  4. PNEUMOREL [Suspect]
     Route: 048
     Dates: end: 20041030
  5. AMBROXOL [Suspect]
     Route: 048
     Dates: end: 20041030
  6. KARDEGIC [Concomitant]
  7. VERAPAMIL [Concomitant]
  8. TRIATEC [Concomitant]
  9. SERETIDE [Concomitant]
  10. LEXOMIL [Concomitant]

REACTIONS (4)
  - CONSTIPATION [None]
  - HEADACHE [None]
  - NAUSEA [None]
  - URINARY RETENTION [None]
